FAERS Safety Report 16537878 (Version 2)
Quarter: 2019Q3

REPORT INFORMATION
  Report Type: Spontaneous
  Country: CN (occurrence: CN)
  Receive Date: 20190708
  Receipt Date: 20190808
  Transmission Date: 20191004
  Serious: Yes (Other)
  Sender: FDA-Public Use
  Company Number: CN-ASTRAZENECA-2019SE96390

PATIENT
  Sex: Female
  Weight: 45 kg

DRUGS (2)
  1. IRESSA [Suspect]
     Active Substance: GEFITINIB
     Indication: LUNG ADENOCARCINOMA
     Dosage: 1.0DF UNKNOWN
     Route: 048
     Dates: start: 201708
  2. IRESSA [Suspect]
     Active Substance: GEFITINIB
     Indication: ADENOCARCINOMA
     Dosage: 1.0DF UNKNOWN
     Route: 048
     Dates: start: 201708

REACTIONS (3)
  - Drug resistance [Unknown]
  - Dermatitis [Unknown]
  - Malignant neoplasm progression [Unknown]
